FAERS Safety Report 24817911 (Version 2)
Quarter: 2025Q1

REPORT INFORMATION
  Report Type: Spontaneous
  Country: US (occurrence: US)
  Receive Date: 20250108
  Receipt Date: 20250325
  Transmission Date: 20250409
  Serious: No
  Sender: BOEHRINGER INGELHEIM
  Company Number: US-Komodo Health-a23aa0000056bI9AAI

PATIENT
  Age: 89 Year
  Sex: Male

DRUGS (1)
  1. COMBIVENT RESPIMAT [Suspect]
     Active Substance: ALBUTEROL SULFATE\IPRATROPIUM BROMIDE
     Indication: Wheezing
     Dosage: 1 PUFF
     Dates: start: 20241229

REACTIONS (3)
  - Off label use [Unknown]
  - Product delivery mechanism issue [Unknown]
  - Device issue [Unknown]

NARRATIVE: CASE EVENT DATE: 20241229
